FAERS Safety Report 4559277-4 (Version None)
Quarter: 2005Q1

REPORT INFORMATION
  Report Type: 
  Country: None (occurrence: None)
  Receive Date: 20050124
  Receipt Date: 20050114
  Transmission Date: 20050727
  Serious: Yes (Hospitalization)
  Sender: FDA-Public Use
  Company Number: FR-ROCHE-392509

PATIENT
  Age: 57 Year
  Sex: Male

DRUGS (2)
  1. VALIUM [Suspect]
     Indication: DELIRIUM TREMENS
     Route: 065
  2. VITAMIN B1/VITAMIN B6 [Concomitant]
     Indication: DELIRIUM TREMENS

REACTIONS (1)
  - ANGIONEUROTIC OEDEMA [None]
